FAERS Safety Report 6132717-5 (Version None)
Quarter: 2009Q1

REPORT INFORMATION
  Report Type: 
  Country: None (occurrence: None)
  Receive Date: 20090325
  Receipt Date: 20090325
  Transmission Date: 20090719
  Serious: Yes (Disabling, Other)
  Sender: FDA-Public Use
  Company Number: None

PATIENT
  Sex: Female
  Weight: 72.5755 kg

DRUGS (2)
  1. FOSAMAX [Suspect]
     Indication: OSTEOPOROSIS
     Dosage: 70 MG QWEEK ORAL
     Route: 048
     Dates: start: 20050701, end: 20081201
  2. FOSAMAX PLUS D [Suspect]
     Dosage: QWEEK ORAL
     Route: 048
     Dates: start: 20050701, end: 20081201

REACTIONS (1)
  - OSTEONECROSIS [None]
